FAERS Safety Report 9574723 (Version 1)
Quarter: 2013Q4

REPORT INFORMATION
  Report Type: Spontaneous
  Country: GB (occurrence: GB)
  Receive Date: 20131001
  Receipt Date: 20131001
  Transmission Date: 20140711
  Serious: Yes (Other)
  Sender: FDA-Public Use
  Company Number: GB-BRISTOL-MYERS SQUIBB COMPANY-19410141

PATIENT
  Age: 60 Year
  Sex: Male
  Weight: 76 kg

DRUGS (13)
  1. FORXIGA [Suspect]
     Indication: TYPE 2 DIABETES MELLITUS
     Route: 048
     Dates: start: 20130718, end: 20130802
  2. BYETTA [Interacting]
  3. METFORMIN [Concomitant]
  4. GLIMEPIRIDE [Concomitant]
  5. SEROXAT [Concomitant]
  6. DIHYDROCODEINE [Concomitant]
  7. DICLOFENAC [Concomitant]
  8. ROSUVASTATIN [Concomitant]
  9. RAMIPRIL [Concomitant]
  10. PANTOPRAZOLE [Concomitant]
  11. APRACLONIDINE HCL [Concomitant]
     Route: 047
  12. BRINZOLAMIDE [Concomitant]
     Route: 047
  13. BIMATOPROST [Concomitant]

REACTIONS (7)
  - Intraocular pressure increased [Recovered/Resolved]
  - Abdominal distension [Recovered/Resolved]
  - Lethargy [Recovered/Resolved]
  - Renal pain [Recovered/Resolved]
  - Back pain [Recovered/Resolved]
  - Ocular hyperaemia [Recovered/Resolved]
  - Drug interaction [Unknown]
